FAERS Safety Report 5759648-4 (Version None)
Quarter: 2008Q2

REPORT INFORMATION
  Report Type: 
  Country: None (occurrence: None)
  Receive Date: 20080605
  Receipt Date: 20080528
  Transmission Date: 20081010
  Serious: Yes (Death, Hospitalization)
  Sender: FDA-Public Use
  Company Number: GB-AVENTIS-200814968GDDC

PATIENT
  Age: 70 Year
  Sex: Male
  Weight: 74 kg

DRUGS (4)
  1. DOCETAXEL [Suspect]
     Indication: PROSTATE CANCER
     Route: 042
     Dates: start: 20080313, end: 20080515
  2. ZOLEDRONIC ACID [Suspect]
     Indication: PROSTATE CANCER
     Dates: start: 20080313, end: 20080515
  3. PREDNISOLONE [Suspect]
     Indication: PROSTATE CANCER
     Dates: start: 20080313, end: 20080525
  4. STRONTIUM CHLORIDE SR-89 [Suspect]
     Indication: PROSTATE CANCER

REACTIONS (4)
  - INFECTION [None]
  - MYOCARDIAL INFARCTION [None]
  - ORAL INTAKE REDUCED [None]
  - SEPSIS [None]
